FAERS Safety Report 7912702-0 (Version None)
Quarter: 2011Q4

REPORT INFORMATION
  Report Type: 
  Country: None (occurrence: None)
  Receive Date: 20111114
  Receipt Date: 20111108
  Transmission Date: 20120403
  Serious: Yes (Hospitalization)
  Sender: FDA-Public Use
  Company Number: US-AMGEN-USACT2011058805

PATIENT
  Sex: Male

DRUGS (2)
  1. BLINDED DARBEPOETIN ALFA [Suspect]
     Indication: CARDIAC FAILURE
     Dates: start: 20110427
  2. BLINDED PLACEBO [Suspect]
     Indication: CARDIAC FAILURE
     Dates: start: 20110427

REACTIONS (3)
  - KIDNEY INFECTION [None]
  - RENAL FAILURE CHRONIC [None]
  - CARDIAC FAILURE CONGESTIVE [None]
